FAERS Safety Report 10017607 (Version 1)
Quarter: 2014Q1

REPORT INFORMATION
  Report Type: Spontaneous
  Country: US (occurrence: US)
  Receive Date: 20140318
  Receipt Date: 20140318
  Transmission Date: 20141002
  Serious: No
  Sender: FDA-Public Use
  Company Number: US-BRISTOL-MYERS SQUIBB COMPANY-17388695

PATIENT
  Age: 64 Year
  Sex: Male
  Weight: 77.1 kg

DRUGS (1)
  1. ERBITUX [Suspect]
     Indication: BLADDER CANCER
     Dosage: 2ND DOSE 12FEB2013
     Dates: start: 20130205

REACTIONS (1)
  - Rash [Recovering/Resolving]
